FAERS Safety Report 12146940 (Version 1)
Quarter: 2016Q1

REPORT INFORMATION
  Report Type: Spontaneous
  Country: IT (occurrence: IT)
  Receive Date: 20160304
  Receipt Date: 20160304
  Transmission Date: 20160526
  Serious: Yes (Hospitalization)
  Sender: FDA-Public Use
  Company Number: IT-BAXTER-2016BAX009855

PATIENT
  Sex: Male

DRUGS (11)
  1. GLUCOSIO BAXTER S.P.A. 33% [Suspect]
     Active Substance: DEXTROSE
     Indication: PARENTERAL NUTRITION
     Route: 042
     Dates: start: 20160208
  2. ACQUA PER PREPARAZIONI INIETTABILI BAXTER [Suspect]
     Active Substance: WATER
     Indication: PARENTERAL NUTRITION
     Route: 042
     Dates: start: 20160208
  3. POTASSIUM CHLORIDE 3MEQ/ML [Suspect]
     Active Substance: POTASSIUM CHLORIDE
     Indication: PARENTERAL NUTRITION
     Dosage: FORM STRENGTH 3 MEQ/ML 100 ML
     Route: 042
     Dates: start: 20160208
  4. CALCIUM GLUCONATE. [Suspect]
     Active Substance: CALCIUM GLUCONATE
     Indication: PARENTERAL NUTRITION
     Route: 042
     Dates: start: 20160208
  5. VITALIPID PED. [Suspect]
     Active Substance: VITAMINS
     Indication: PARENTERAL NUTRITION
     Route: 042
     Dates: start: 20160208
  6. MAGNESIUM CHLORIDE. [Suspect]
     Active Substance: MAGNESIUM CHLORIDE
     Indication: PARENTERAL NUTRITION
     Route: 042
     Dates: start: 20160208
  7. EPSODILAVE [Suspect]
     Active Substance: HEPARIN SODIUM
     Indication: PARENTERAL NUTRITION
     Dosage: FORM STRENGTH: 250 UI/5 ML
     Route: 042
     Dates: start: 20160208
  8. SOLUVIT [Suspect]
     Active Substance: VITAMINS
     Indication: PARENTERAL NUTRITION
     Route: 042
     Dates: start: 20160208
  9. INTRALIPID [Suspect]
     Active Substance: EGG PHOSPHOLIPIDS\GLYCERIN\SOYBEAN OIL
     Indication: PARENTERAL NUTRITION
     Route: 042
     Dates: start: 20160208
  10. SODIO CLORURO BAXTER S.P.A. 0,9% [Suspect]
     Active Substance: SODIUM CHLORIDE
     Indication: PARENTERAL NUTRITION
     Route: 042
     Dates: start: 20160208
  11. SODIUM GLICERO PHOSPHATE 2MEQ/ML [Suspect]
     Active Substance: SODIUM GLYCEROPHOSPHATE
     Indication: PARENTERAL NUTRITION
     Dosage: FORM STRENGTH 2 MEQ/ML 500 ML
     Route: 042
     Dates: start: 20160208

REACTIONS (1)
  - Infection [Recovering/Resolving]
